FAERS Safety Report 7597207-1 (Version None)
Quarter: 2011Q3

REPORT INFORMATION
  Report Type: 
  Country: None (occurrence: None)
  Receive Date: 20110708
  Receipt Date: 20100915
  Transmission Date: 20111222
  Serious: No
  Sender: FDA-Public Use
  Company Number: US-GLAXOSMITHKLINE-A0881293A

PATIENT
  Age: 71 Year
  Sex: Male

DRUGS (7)
  1. SIMVASTATIN [Concomitant]
  2. FLOVENT [Suspect]
     Indication: CHRONIC OBSTRUCTIVE PULMONARY DISEASE
     Dosage: 2PUFF TWICE PER DAY
     Route: 055
     Dates: start: 20100415
  3. FLOMAX [Concomitant]
  4. PROVENTIL [Concomitant]
  5. GABAPENTIN [Concomitant]
  6. FLONASE [Concomitant]
  7. UNSPECIFIED MEDICATION [Concomitant]
     Indication: INFLAMMATION

REACTIONS (3)
  - DYSPHONIA [None]
  - DRY THROAT [None]
  - PRODUCT QUALITY ISSUE [None]
